FAERS Safety Report 16890672 (Version 1)
Quarter: 2019Q4

REPORT INFORMATION
  Report Type: Spontaneous
  Country: US (occurrence: US)
  Receive Date: 20191007
  Receipt Date: 20191007
  Transmission Date: 20200122
  Serious: No
  Sender: FDA-Public Use
  Company Number: US-PFIZER INC-2019428230

PATIENT
  Age: 72 Year
  Sex: Female

DRUGS (2)
  1. LYRICA CR [Suspect]
     Active Substance: PREGABALIN
     Indication: TRIGEMINAL NEURALGIA
     Dosage: 1 TABLET BID (2X/DAY)
  2. LYRICA CR [Suspect]
     Active Substance: PREGABALIN
     Dosage: 100 MG, UNK

REACTIONS (3)
  - Drug ineffective [Unknown]
  - Somnolence [Unknown]
  - Balance disorder [Unknown]
